FAERS Safety Report 12687093 (Version 2)
Quarter: 2016Q3

REPORT INFORMATION
  Report Type: Spontaneous
  Country: DE (occurrence: DE)
  Receive Date: 20160826
  Receipt Date: 20160919
  Transmission Date: 20161109
  Serious: Yes (Death, Other)
  Sender: FDA-Public Use
  Company Number: DE-CIPLA LTD.-2016DE17530

PATIENT

DRUGS (6)
  1. TOPOTECAN [Suspect]
     Active Substance: TOPOTECAN\TOPOTECAN HYDROCHLORIDE
     Indication: EMBRYONAL RHABDOMYOSARCOMA
     Dosage: 8 MG, 1 CYCLE
     Route: 065
     Dates: start: 200911
  2. IFOSFAMIDE. [Suspect]
     Active Substance: IFOSFAMIDE
     Indication: EMBRYONAL RHABDOMYOSARCOMA
     Dosage: 3000 MG/M2, 9 CYCLES
     Route: 065
     Dates: start: 200901, end: 200909
  3. VINCRISTINE [Suspect]
     Active Substance: VINCRISTINE
     Indication: RHABDOMYOSARCOMA
     Dosage: 1.5 MG/M2, 9 CYCLES
     Route: 065
     Dates: start: 200901, end: 200909
  4. CYCLOPHOSPHAMIDE. [Suspect]
     Active Substance: CYCLOPHOSPHAMIDE
     Indication: EMBRYONAL RHABDOMYOSARCOMA
     Dosage: 2000 MG, 1 CYCLE
     Route: 065
     Dates: start: 200911
  5. ACTINOMYCIN D [Suspect]
     Active Substance: DACTINOMYCIN
     Indication: EMBRYONAL RHABDOMYOSARCOMA
     Dosage: 1.5 MG/M2, 9 CYCLES
     Route: 065
     Dates: start: 200901, end: 200909
  6. DOXORUBICIN [Suspect]
     Active Substance: DOXORUBICIN
     Indication: RHABDOMYOSARCOMA
     Dosage: 2 ? 20 MG/M2, UNK
     Route: 065
     Dates: start: 200901, end: 200909

REACTIONS (4)
  - Metastases to peritoneum [Unknown]
  - Disease progression [Fatal]
  - Ileus paralytic [Unknown]
  - Neutropenia [Unknown]
